FAERS Safety Report 14477275 (Version 1)
Quarter: 2018Q1

REPORT INFORMATION
  Report Type: Report from Study
  Country: US (occurrence: US)
  Receive Date: 20180201
  Receipt Date: 20180201
  Transmission Date: 20180509
  Serious: No
  Sender: FDA-Public Use
  Company Number: US-EXELIXIS-CABO-17011030

PATIENT
  Sex: Female

DRUGS (26)
  1. COMETRIQ [Suspect]
     Active Substance: CABOZANTINIB S-MALATE
     Indication: THYROID CANCER
     Dosage: 60 MG, QD
     Route: 048
     Dates: start: 20170816, end: 20170907
  2. COMETRIQ [Suspect]
     Active Substance: CABOZANTINIB S-MALATE
     Dosage: 60 MG, QD
     Route: 048
     Dates: start: 20170910, end: 20171006
  3. CLONIDINE. [Concomitant]
     Active Substance: CLONIDINE
  4. JANUVIA [Concomitant]
     Active Substance: SITAGLIPTIN PHOSPHATE
  5. LISINOPRIL. [Concomitant]
     Active Substance: LISINOPRIL
  6. RANITIDINE. [Concomitant]
     Active Substance: RANITIDINE
  7. ISOSORBIDE MONONITRATE. [Concomitant]
     Active Substance: ISOSORBIDE MONONITRATE
  8. COMPAZINE [Concomitant]
     Active Substance: PROCHLORPERAZINE MALEATE
  9. RENVELA [Concomitant]
     Active Substance: SEVELAMER CARBONATE
  10. ZOCOR [Concomitant]
     Active Substance: SIMVASTATIN
  11. FUROSEMIDE. [Concomitant]
     Active Substance: FUROSEMIDE
  12. FERROUS SULFATE. [Concomitant]
     Active Substance: FERROUS SULFATE
  13. BIOTIN [Concomitant]
     Active Substance: BIOTIN
  14. METOPROLOL. [Concomitant]
     Active Substance: METOPROLOL
  15. AMLODIPINE [Concomitant]
     Active Substance: AMLODIPINE BESYLATE
  16. BENADRYL [Concomitant]
     Active Substance: DIPHENHYDRAMINE HYDROCHLORIDE
  17. UREA. [Concomitant]
     Active Substance: UREA
  18. LEVOTHYROXIN [Concomitant]
     Active Substance: LEVOTHYROXINE
  19. INSULIN BOVINE [Concomitant]
  20. MUPIROCIN. [Concomitant]
     Active Substance: MUPIROCIN
  21. LOPERAMIDE [Concomitant]
     Active Substance: LOPERAMIDE
  22. ALBUTEROL. [Concomitant]
     Active Substance: ALBUTEROL
  23. BENZONATATE. [Concomitant]
     Active Substance: BENZONATATE
  24. SIMVASTATIN. [Concomitant]
     Active Substance: SIMVASTATIN
  25. ASPIRIN. [Concomitant]
     Active Substance: ASPIRIN
  26. OXYCODONE [Concomitant]
     Active Substance: OXYCODONE

REACTIONS (1)
  - Blister [Unknown]
